FAERS Safety Report 20762640 (Version 1)
Quarter: 2022Q2

REPORT INFORMATION
  Report Type: Spontaneous
  Country: US (occurrence: None)
  Receive Date: 20220427
  Receipt Date: 20220427
  Transmission Date: 20220720
  Serious: Yes (Other)
  Sender: FDA-Public Use
  Company Number: None

PATIENT
  Age: 64 Year
  Sex: Female
  Weight: 99.45 kg

DRUGS (1)
  1. SYNTHROID [Suspect]
     Active Substance: LEVOTHYROXINE SODIUM
     Indication: Product used for unknown indication

REACTIONS (14)
  - Adverse drug reaction [None]
  - Weight increased [None]
  - Tooth loss [None]
  - Gait disturbance [None]
  - Alopecia [None]
  - Visual impairment [None]
  - Onychomadesis [None]
  - Pain in extremity [None]
  - Intentional product use issue [None]
  - Self-medication [None]
  - Treatment noncompliance [None]
  - Product prescribing issue [None]
  - Hyperthyroidism [None]
  - Emotional distress [None]

NARRATIVE: CASE EVENT DATE: 20220306
